FAERS Safety Report 5663808-0 (Version None)
Quarter: 2008Q1

REPORT INFORMATION
  Report Type: 
  Country: None (occurrence: None)
  Receive Date: 20080310
  Receipt Date: 20080226
  Transmission Date: 20080703
  Serious: Yes (Death)
  Sender: FDA-Public Use
  Company Number: 2005146861

PATIENT
  Age: 24 Year
  Sex: Female
  Weight: 30.4 kg

DRUGS (1)
  1. BENADRYL [Suspect]
     Indication: SUICIDE ATTEMPT
     Dosage: WITHIN 3 HOURS, ORAL
     Route: 048
     Dates: start: 20050518, end: 20050518

REACTIONS (2)
  - COMPLETED SUICIDE [None]
  - OVERDOSE [None]
